FAERS Safety Report 24171655 (Version 1)
Quarter: 2024Q3

REPORT INFORMATION
  Report Type: Spontaneous
  Country: US (occurrence: US)
  Receive Date: 20240805
  Receipt Date: 20240805
  Transmission Date: 20241017
  Serious: No
  Sender: BAUSCH AND LOMB
  Company Number: US-BAUSCHBL-2024BNL030608

PATIENT
  Sex: Female

DRUGS (3)
  1. LUMIFY [Suspect]
     Active Substance: BRIMONIDINE TARTRATE
     Indication: Product used for unknown indication
     Dosage: AROUND A YEAR AND A HALF AGO, ON AN OCCASIONAL BASIS
     Route: 047
  2. LUMIFY [Suspect]
     Active Substance: BRIMONIDINE TARTRATE
  3. REFRESH OPTIVE MEGA 3  PRESERVATIVE FREE EYE  DROPS [Concomitant]
     Indication: Product used for unknown indication
     Route: 065

REACTIONS (4)
  - Asthenopia [Recovering/Resolving]
  - Reaction to preservatives [Unknown]
  - Eye pain [Recovering/Resolving]
  - Eye irritation [Recovering/Resolving]

NARRATIVE: CASE EVENT DATE: 20240701
